FAERS Safety Report 6912288-3 (Version None)
Quarter: 2010Q3

REPORT INFORMATION
  Report Type: 
  Country: None (occurrence: None)
  Receive Date: 20100806
  Receipt Date: 20080318
  Transmission Date: 20110219
  Serious: No
  Sender: FDA-Public Use
  Company Number: US-PFIZER INC-2008025573

PATIENT
  Sex: Female

DRUGS (5)
  1. DETROL LA [Suspect]
     Indication: HYPERTONIC BLADDER
     Dates: start: 20080101, end: 20080314
  2. DETROL LA [Suspect]
     Indication: INCONTINENCE
  3. ATACAND [Concomitant]
  4. GLYNASE [Concomitant]
     Indication: TYPE 2 DIABETES MELLITUS
  5. LIPITOR [Concomitant]
     Indication: BLOOD CHOLESTEROL ABNORMAL

REACTIONS (1)
  - DIZZINESS [None]
